FAERS Safety Report 5582205-X (Version None)
Quarter: 2008Q1

REPORT INFORMATION
  Report Type: 
  Country: None (occurrence: None)
  Receive Date: 20080104
  Receipt Date: 20071228
  Transmission Date: 20080703
  Serious: Yes (Death)
  Sender: FDA-Public Use
  Company Number: FR-BRISTOL-MYERS SQUIBB COMPANY-14029151

PATIENT
  Age: 49 Year
  Sex: Male

DRUGS (9)
  1. CETUXIMAB [Suspect]
     Indication: SQUAMOUS CELL CARCINOMA
     Dosage: THERAPY DURATION-LAST INJECTION
     Route: 041
     Dates: end: 20071115
  2. DIFFU-K [Concomitant]
  3. LYRICA [Concomitant]
  4. BACTRIM [Concomitant]
  5. DURAGESIC-100 [Concomitant]
  6. FORTIMEL [Concomitant]
  7. PYOSTACINE [Concomitant]
  8. RIFADIN [Concomitant]
  9. LEDERFOLINE [Concomitant]

REACTIONS (1)
  - SEPTIC SHOCK [None]
